FAERS Safety Report 12422791 (Version 2)
Quarter: 2016Q4

REPORT INFORMATION
  Report Type: Spontaneous
  Country: IT (occurrence: IT)
  Receive Date: 20160601
  Receipt Date: 20161114
  Transmission Date: 20170207
  Serious: Yes (Hospitalization)
  Sender: FDA-Public Use
  Company Number: IT-ASTRAZENECA-2016SE56161

PATIENT
  Age: 20051 Day
  Sex: Male

DRUGS (12)
  1. TOTALIP [Concomitant]
     Active Substance: ATORVASTATIN
     Dosage: 10.0MG UNKNOWN
     Route: 048
  2. KANRENOL [Concomitant]
     Active Substance: CANRENOATE POTASSIUM
     Dosage: 100.0MG UNKNOWN
     Route: 048
  3. TAVOR (LORAZEPAM) [Concomitant]
     Active Substance: LORAZEPAM
     Dosage: 1.0MG UNKNOWN
     Route: 048
  4. BRILIQUE [Suspect]
     Active Substance: TICAGRELOR
     Route: 048
  5. CARDIOASPIRIN [Interacting]
     Active Substance: ASPIRIN
     Route: 048
  6. LASIX [Concomitant]
     Active Substance: FUROSEMIDE
     Dosage: 25.0MG UNKNOWN
     Route: 048
  7. ZYPREXA [Concomitant]
     Active Substance: OLANZAPINE
     Dosage: 2.5 MG COATING TABLETS
     Route: 048
  8. LANSOX [Concomitant]
     Active Substance: LANSOPRAZOLE
     Dosage: 15.0MG UNKNOWN
     Route: 048
  9. FELISON [Concomitant]
     Active Substance: FLURAZEPAM MONOHYDROCHLORIDE
     Dosage: 15.0MG UNKNOWN
     Route: 048
  10. PAROXETINE. [Concomitant]
     Active Substance: PAROXETINE
     Dosage: 20.0MG UNKNOWN
     Route: 048
  11. FOSTER [Concomitant]
     Active Substance: BECLOMETHASONE\FORMOTEROL
     Dosage: 100 MCG/6 MCG PER ACTUATION PRESSURISED INHALATION SOLUTION
     Route: 055
  12. CONGESCOR [Concomitant]
     Active Substance: BISOPROLOL
     Dosage: 5.0MG UNKNOWN
     Route: 048

REACTIONS (8)
  - Subarachnoid haemorrhage [Unknown]
  - Head injury [Unknown]
  - Auricular haematoma [Unknown]
  - Contusion [Unknown]
  - Wound [Unknown]
  - Drug interaction [Unknown]
  - Road traffic accident [Unknown]
  - Traumatic haemorrhage [Unknown]

NARRATIVE: CASE EVENT DATE: 20160319
